FAERS Safety Report 18088957 (Version 1)
Quarter: 2020Q3

REPORT INFORMATION
  Report Type: Spontaneous
  Country: GB (occurrence: GB)
  Receive Date: 20200729
  Receipt Date: 20200729
  Transmission Date: 20201103
  Serious: Yes (Hospitalization, Other)
  Sender: FDA-Public Use
  Company Number: GB-009507513-2007GBR009243

PATIENT
  Age: 27 Year
  Sex: Female
  Weight: 109.31 kg

DRUGS (1)
  1. NEXPLANON [Suspect]
     Active Substance: ETONOGESTREL
     Indication: CONTRACEPTION
     Dosage: UNK
     Dates: start: 20120910

REACTIONS (7)
  - Migraine [Not Recovered/Not Resolved]
  - Nausea [Not Recovered/Not Resolved]
  - Abnormal weight gain [Not Recovered/Not Resolved]
  - Abdominal pain [Not Recovered/Not Resolved]
  - Menstruation irregular [Recovered/Resolved with Sequelae]
  - Acne [Not Recovered/Not Resolved]
  - Menorrhagia [Unknown]

NARRATIVE: CASE EVENT DATE: 20120925
